FAERS Safety Report 7226011-9 (Version None)
Quarter: 2011Q1

REPORT INFORMATION
  Report Type: 
  Country: None (occurrence: None)
  Receive Date: 20110113
  Receipt Date: 20101229
  Transmission Date: 20110831
  Serious: No
  Sender: FDA-Public Use
  Company Number: US-B.I. PHARMACEUTICALS,INC./RIDGEFIELD-2011-BP-00291BP

PATIENT
  Age: 88 Year
  Sex: Female

DRUGS (7)
  1. LOW DOSE ASA [Concomitant]
  2. PRADAXA [Suspect]
     Indication: CEREBROVASCULAR ACCIDENT PROPHYLAXIS
  3. PRADAXA [Suspect]
     Indication: ATRIAL FIBRILLATION
     Dosage: 300 MG
     Route: 048
     Dates: start: 20101101
  4. ATENOLOL [Concomitant]
  5. IMDUR [Concomitant]
  6. LOVASTATIN [Concomitant]
  7. ATIVAN [Concomitant]

REACTIONS (1)
  - INTERNATIONAL NORMALISED RATIO ABNORMAL [None]
